FAERS Safety Report 7640262-0 (Version None)
Quarter: 2011Q3

REPORT INFORMATION
  Report Type: 
  Country: None (occurrence: None)
  Receive Date: 20110728
  Receipt Date: 20110719
  Transmission Date: 20111222
  Serious: Yes (Hospitalization, Other)
  Sender: FDA-Public Use
  Company Number: US-BAYER-2011-023845

PATIENT
  Age: 29 Year
  Sex: Female

DRUGS (14)
  1. YASMIN [Suspect]
     Indication: PRODUCT USED FOR UNKNOWN INDICATION
  2. DARVOCET [Concomitant]
     Route: 048
  3. CAMILA [Concomitant]
     Dosage: .35 MG, UNK
     Route: 048
  4. KETOCONAZOLE [Concomitant]
     Dosage: 2 UNK, UNK
     Route: 061
  5. YAZ [Suspect]
     Indication: PRODUCT USED FOR UNKNOWN INDICATION
  6. DROSPIRENONE AND ETHINYL ESTRADIOL [Suspect]
     Indication: PRODUCT USED FOR UNKNOWN INDICATION
  7. IBUPROFEN [Concomitant]
     Dosage: 800 MG, UNK
     Route: 048
  8. CEPHALEXIN [Concomitant]
     Dosage: 250 MG, UNK
     Route: 048
  9. NASACORT [Concomitant]
     Dosage: 55 UNK, UNK
  10. CYCLESSA [Concomitant]
  11. AMOXICILLIN [Concomitant]
     Dosage: 500 MG, UNK
     Route: 048
  12. AZITHROMYCIN [Concomitant]
     Dosage: 250 MG, UNK
     Route: 048
  13. PROCTOFOAM [PRAMOCAINE HYDROCHLORIDE] [Concomitant]
     Route: 061
  14. DOCUSATE [Concomitant]
     Dosage: 100 MG, UNK
     Route: 048

REACTIONS (7)
  - MALAISE [None]
  - GALLBLADDER DISORDER [None]
  - VOMITING [None]
  - NAUSEA [None]
  - CHOLECYSTITIS CHRONIC [None]
  - INSOMNIA [None]
  - DIARRHOEA [None]
